FAERS Safety Report 11695552 (Version 1)
Quarter: 2015Q4

REPORT INFORMATION
  Report Type: Spontaneous
  Country: VE (occurrence: VE)
  Receive Date: 20151104
  Receipt Date: 20151104
  Transmission Date: 20160304
  Serious: Yes (Other)
  Sender: FDA-Public Use
  Company Number: VE-ORION CORPORATION ORION PHARMA-ENTC2015-0623

PATIENT
  Sex: Male

DRUGS (1)
  1. STALEVO [Suspect]
     Active Substance: CARBIDOPA\ENTACAPONE\LEVODOPA
     Indication: PARKINSON^S DISEASE
     Dosage: 1(UNSPECIFIED UNITS)
     Route: 065

REACTIONS (1)
  - Parkinsonian crisis [Not Recovered/Not Resolved]
